FAERS Safety Report 8021400-7 (Version None)
Quarter: 2012Q1

REPORT INFORMATION
  Report Type: 
  Country: None (occurrence: None)
  Receive Date: 20120104
  Receipt Date: 20111229
  Transmission Date: 20120608
  Serious: Yes (Other)
  Sender: FDA-Public Use
  Company Number: US-PFIZER INC-2011316554

PATIENT
  Sex: Female
  Weight: 102 kg

DRUGS (3)
  1. BEXTRA [Suspect]
     Indication: PAIN IN EXTREMITY
  2. BEXTRA [Suspect]
     Indication: TENDONITIS
     Dosage: 20 MG, 1X/DAY
     Route: 048
     Dates: start: 20040101, end: 20040101
  3. BEXTRA [Suspect]
     Indication: OEDEMA PERIPHERAL

REACTIONS (4)
  - VISUAL IMPAIRMENT [None]
  - VISION BLURRED [None]
  - MYDRIASIS [None]
  - OCULAR VASCULAR DISORDER [None]
